FAERS Safety Report 6075634-1 (Version None)
Quarter: 2009Q1

REPORT INFORMATION
  Report Type: 
  Country: None (occurrence: None)
  Receive Date: 20090212
  Receipt Date: 20090202
  Transmission Date: 20090719
  Serious: Yes (Hospitalization)
  Sender: FDA-Public Use
  Company Number: US-PFIZER INC-2009165148

PATIENT
  Sex: Male
  Weight: 72.574 kg

DRUGS (7)
  1. TIKOSYN [Suspect]
     Indication: ATRIAL FIBRILLATION
     Route: 048
  2. ARAVA [Concomitant]
     Indication: RHEUMATOID ARTHRITIS
     Dosage: UNK
  3. FOLIC ACID [Concomitant]
     Dosage: UNK
  4. TAMSULOSIN HYDROCHLORIDE [Concomitant]
     Dosage: UNK
  5. RANITIDINE [Concomitant]
     Dosage: UNK
  6. SIMVASTATIN [Concomitant]
     Dosage: UNK
  7. OMEPRAZOLE [Concomitant]

REACTIONS (2)
  - FALL [None]
  - SKIN LACERATION [None]
